FAERS Safety Report 5171136-5 (Version None)
Quarter: 2006Q4

REPORT INFORMATION
  Report Type: 
  Country: None (occurrence: None)
  Receive Date: 20061206
  Receipt Date: 20061206
  Transmission Date: 20070319
  Serious: Yes (Hospitalization)
  Sender: FDA-Public Use
  Company Number: None

PATIENT
  Sex: Female
  Weight: 80 kg

DRUGS (15)
  1. MERREM [Suspect]
     Indication: ABDOMINAL ABSCESS
     Dosage: 1GM  Q8H IV
     Route: 042
     Dates: start: 20061109, end: 20061204
  2. AMLODIPINE [Concomitant]
  3. BETOPTIC [Concomitant]
  4. CARVEDILOL [Concomitant]
  5. CITALOPRAM HYDROBROMIDE [Concomitant]
  6. CLONIDINE [Concomitant]
  7. EPOETIN ALFA [Concomitant]
  8. HYDRALAZINE HCL [Concomitant]
  9. LANTUS, NOVOLOG [Concomitant]
  10. ISOSORBIDE MONONITRATE [Concomitant]
  11. LEVOTHYROXINE SODIUM [Concomitant]
  12. MAGNESIUM [Concomitant]
  13. PANTOPRAZOLE SODIUM [Concomitant]
  14. SPIRONOLACTONE [Concomitant]
  15. WARFARIN SODIUM [Concomitant]

REACTIONS (2)
  - EOSINOPHIL COUNT INCREASED [None]
  - NEUTROPENIA [None]
